FAERS Safety Report 4946389-6 (Version None)
Quarter: 2006Q1

REPORT INFORMATION
  Report Type: 
  Country: None (occurrence: None)
  Receive Date: 20060315
  Receipt Date: 20060315
  Transmission Date: 20060701
  Serious: Yes (Other)
  Sender: FDA-Public Use
  Company Number: None

PATIENT
  Age: 19 Year
  Sex: Female

DRUGS (1)
  1. TUBERSOL [Suspect]
     Dosage: ID
     Route: 023

REACTIONS (6)
  - BALANCE DISORDER [None]
  - EYE PRURITUS [None]
  - LACRIMATION INCREASED [None]
  - NASAL CONGESTION [None]
  - PAIN IN EXTREMITY [None]
  - RHINORRHOEA [None]
